FAERS Safety Report 4999825-3 (Version None)
Quarter: 2006Q2

REPORT INFORMATION
  Report Type: 
  Country: None (occurrence: None)
  Receive Date: 20060510
  Receipt Date: 20060510
  Transmission Date: 20061013
  Serious: Yes (Hospitalization)
  Sender: FDA-Public Use
  Company Number: None

PATIENT
  Age: 58 Year
  Sex: Male
  Weight: 66 kg

DRUGS (4)
  1. WARFARIN SODIUM [Suspect]
     Indication: AORTIC VALVE REPLACEMENT
     Dosage: 5 MG DAILY PO
     Route: 048
  2. TYLENOL (CAPLET) [Concomitant]
  3. HYDROCHLOROTHIAZIDE [Concomitant]
  4. DARVOCET-N 100 [Concomitant]

REACTIONS (8)
  - ASTHENIA [None]
  - DIVERTICULUM [None]
  - DIZZINESS [None]
  - DYSPNOEA [None]
  - HAEMATOCHEZIA [None]
  - HAEMATOCRIT ABNORMAL [None]
  - HAEMORRHOIDS [None]
  - RECTAL HAEMORRHAGE [None]
